FAERS Safety Report 12434588 (Version 1)
Quarter: 2016Q2

REPORT INFORMATION
  Report Type: Spontaneous
  Country: US (occurrence: US)
  Receive Date: 20160603
  Receipt Date: 20160603
  Transmission Date: 20160815
  Serious: Yes (Hospitalization)
  Sender: FDA-Public Use
  Company Number: US-DSJP-DSU-2015-125983

PATIENT
  Age: 46 Year
  Sex: Male
  Weight: 151.2 kg

DRUGS (1)
  1. BENICAR [Suspect]
     Active Substance: OLMESARTAN MEDOXOMIL
     Indication: HYPERTENSION
     Dosage: 40 MG, QD
     Dates: start: 200702, end: 200907

REACTIONS (7)
  - Gastric ulcer [Unknown]
  - Depression [Unknown]
  - Malabsorption [Unknown]
  - Anxiety [Unknown]
  - Decreased appetite [Unknown]
  - Chest pain [Recovered/Resolved]
  - Dizziness [Unknown]

NARRATIVE: CASE EVENT DATE: 2007
